FAERS Safety Report 5988153-5 (Version None)
Quarter: 2008Q4

REPORT INFORMATION
  Report Type: 
  Country: None (occurrence: None)
  Receive Date: 20081208
  Receipt Date: 20081208
  Transmission Date: 20090506
  Serious: Yes (Life-Threatening)
  Sender: FDA-Public Use
  Company Number: None

PATIENT
  Sex: Male
  Weight: 74.8 kg

DRUGS (1)
  1. CEFTAZIDIME [Suspect]
     Dates: start: 20081012, end: 20081016

REACTIONS (2)
  - DYSPNOEA [None]
  - HYPERSENSITIVITY [None]
